FAERS Safety Report 19815114 (Version 2)
Quarter: 2021Q3

REPORT INFORMATION
  Report Type: Spontaneous
  Country: JP (occurrence: JP)
  Receive Date: 20210910
  Receipt Date: 20210927
  Transmission Date: 20211014
  Serious: Yes (Other)
  Sender: FDA-Public Use
  Company Number: JP-ELI_LILLY_AND_COMPANY-JP202109000658

PATIENT
  Age: 36 Year
  Sex: Female

DRUGS (1)
  1. BAQSIMI [Suspect]
     Active Substance: GLUCAGON
     Indication: HYPOGLYCAEMIC UNCONSCIOUSNESS
     Dosage: 3 MG, SINGLE
     Route: 045

REACTIONS (1)
  - Hypoglycaemic unconsciousness [Recovered/Resolved]
